FAERS Safety Report 21264935 (Version 1)
Quarter: 2022Q3

REPORT INFORMATION
  Report Type: Spontaneous
  Country: US (occurrence: None)
  Receive Date: 20220826
  Receipt Date: 20220826
  Transmission Date: 20221027
  Serious: Yes (Hospitalization)
  Sender: FDA-Public Use
  Company Number: None

PATIENT
  Age: 99 Year
  Sex: Male
  Weight: 50.80 kg

DRUGS (1)
  1. HYDROMORPHONE [Suspect]
     Active Substance: HYDROMORPHONE
     Indication: Pain
     Dosage: 0.5 MG ONCE IV?
     Route: 042
     Dates: start: 20220528, end: 20220528

REACTIONS (6)
  - Acute pulmonary oedema [None]
  - Troponin increased [None]
  - Respiratory depression [None]
  - Hypoxia [None]
  - Hallucination, visual [None]
  - Encephalopathy [None]

NARRATIVE: CASE EVENT DATE: 20220528
